FAERS Safety Report 9292806 (Version 3)
Quarter: 2013Q3

REPORT INFORMATION
  Report Type: Spontaneous
  Country: US (occurrence: None)
  Receive Date: 20130513
  Receipt Date: 20130829
  Transmission Date: 20140515
  Serious: Yes (Hospitalization)
  Sender: FDA-Public Use
  Company Number: ACO_35858_2013

PATIENT
  Age: 60 Year
  Sex: Female
  Weight: 68 kg

DRUGS (10)
  1. AMPYRA (DALFAMPRIDINE) TABLET, 10MG [Suspect]
     Indication: GAIT DISTURBANCE
     Route: 048
     Dates: end: 20130422
  2. LIPITOR (ATORVASTATIN CALCIUM) [Concomitant]
  3. BACLOFEN (BACLOFEN) [Concomitant]
  4. CELEXA (CITALOPRAM HYDROBROMIDE) [Concomitant]
  5. MULTIVITAMINS (ASCORBIC ACID, ERGOCALCIFEROL, FOLIC ACID, NICOTINAMIDE, PANTHENOL, RETINOL, RIBOFLAVIN, THIAMINE HYDROCHLORIDE) [Concomitant]
  6. ASPIRIN (ACETYLSALICYLIC ACID) [Concomitant]
  7. POLY-IRON (POLYSACCHARIDE-IRON COMPLEX) [Concomitant]
  8. VITAMIN D3 (COLECALCIFEROL) [Concomitant]
  9. PROVIGIL (MODAFINIL) [Concomitant]
  10. AUBAGIO [Suspect]
     Route: 048

REACTIONS (4)
  - Renal failure [None]
  - Gait disturbance [None]
  - Incorrect dose administered [None]
  - Gait disturbance [None]
